FAERS Safety Report 13088579 (Version 1)
Quarter: 2017Q1

REPORT INFORMATION
  Report Type: Spontaneous
  Country: CA (occurrence: CA)
  Receive Date: 20170105
  Receipt Date: 20170105
  Transmission Date: 20170428
  Serious: Yes (Other)
  Sender: FDA-Public Use
  Company Number: PHHY2017CA000810

PATIENT
  Sex: Female

DRUGS (2)
  1. PROLIA [Suspect]
     Active Substance: DENOSUMAB
     Indication: OSTEOPOROSIS
     Dosage: UNK (PRE FILLED SYRING. PRESERVATIVE FREE)
     Route: 058
  2. ACLASTA [Suspect]
     Active Substance: ZOLEDRONIC ACID
     Indication: OSTEOPOROSIS
     Dosage: 5.0 MG, UNK
     Route: 042

REACTIONS (6)
  - Influenza [Unknown]
  - Visual impairment [Unknown]
  - Feeling cold [Unknown]
  - Malaise [Unknown]
  - Rash generalised [Unknown]
  - Pneumonia [Unknown]
